FAERS Safety Report 9521804 (Version 1)
Quarter: 2013Q3

REPORT INFORMATION
  Report Type: Spontaneous
  Country: FR (occurrence: FR)
  Receive Date: 20130913
  Receipt Date: 20130913
  Transmission Date: 20140515
  Serious: Yes (Other)
  Sender: FDA-Public Use
  Company Number: PHHY2013FR101014

PATIENT
  Age: 87 Year
  Sex: Female

DRUGS (7)
  1. ACLASTA [Suspect]
     Indication: OSTEOPOROSIS
     Dosage: 5 MG
     Route: 042
     Dates: start: 20091113
  2. PROFENID [Suspect]
     Indication: GASTROINTESTINAL DISORDER
     Dosage: 1 DF
     Route: 030
     Dates: start: 20091114, end: 20091116
  3. RYTHMOL [Concomitant]
     Dosage: UNK
  4. TANAKAN [Concomitant]
     Dosage: UNK
  5. AMLOR [Concomitant]
     Dosage: UKN
  6. COVERSYL [Concomitant]
     Dosage: UNK
  7. KARDEGIC [Concomitant]
     Dosage: UNK

REACTIONS (1)
  - Optic neuritis [Recovered/Resolved]
